FAERS Safety Report 14444355 (Version 1)
Quarter: 2018Q1

REPORT INFORMATION
  Report Type: Spontaneous
  Country: US (occurrence: US)
  Receive Date: 20180125
  Receipt Date: 20180125
  Transmission Date: 20180509
  Serious: No
  Sender: FDA-Public Use
  Company Number: None

PATIENT
  Age: 53 Year
  Sex: Female

DRUGS (2)
  1. PERCOCET [Suspect]
     Active Substance: ACETAMINOPHEN\OXYCODONE HYDROCHLORIDE
     Indication: PAIN
     Route: 048
     Dates: start: 20080101, end: 20171231
  2. PERCOCET [Suspect]
     Active Substance: ACETAMINOPHEN\OXYCODONE HYDROCHLORIDE
     Indication: DEVELOPMENTAL HIP DYSPLASIA
     Route: 048
     Dates: start: 20080101, end: 20171231

REACTIONS (3)
  - Nausea [None]
  - Impaired gastric emptying [None]
  - Vomiting [None]

NARRATIVE: CASE EVENT DATE: 20080101
